FAERS Safety Report 5526056-0 (Version None)
Quarter: 2007Q4

REPORT INFORMATION
  Report Type: 
  Country: None (occurrence: None)
  Receive Date: 20071126
  Receipt Date: 20071116
  Transmission Date: 20080405
  Serious: Yes (Other)
  Sender: FDA-Public Use
  Company Number: ES-ABBOTT-07P-144-0425079-00

PATIENT
  Age: 31 Year
  Sex: Female

DRUGS (2)
  1. DEPAKENE [Suspect]
     Indication: EPILEPSY
  2. CARBAMAZEPINE [Concomitant]
     Indication: DRUG USE FOR UNKNOWN INDICATION
     Route: 065

REACTIONS (6)
  - CONFUSIONAL STATE [None]
  - CONVULSION [None]
  - DRUG DEPENDENCE [None]
  - DRUG INEFFECTIVE [None]
  - EPILEPSY [None]
  - PYREXIA [None]
